FAERS Safety Report 6916663-2 (Version None)
Quarter: 2010Q3

REPORT INFORMATION
  Report Type: 
  Country: None (occurrence: None)
  Receive Date: 20100809
  Receipt Date: 20100809
  Transmission Date: 20110219
  Serious: Yes (Hospitalization)
  Sender: FDA-Public Use
  Company Number: None

PATIENT
  Sex: Female
  Weight: 58.9 kg

DRUGS (5)
  1. ABRAXANE [Suspect]
     Indication: BREAST CANCER METASTATIC
     Dosage: ABRAXANE EVERY 8 WEEKS IV
     Route: 042
     Dates: start: 20100219, end: 20100524
  2. AVASTIN [Suspect]
     Indication: BREAST CANCER METASTATIC
     Dosage: AVASTIN EVERY 14 DAYS IV
     Route: 042
     Dates: start: 20100219, end: 20100604
  3. VANCOMYCIN [Concomitant]
  4. ZOSYN [Concomitant]
  5. KEFZOL [Concomitant]

REACTIONS (5)
  - BETA HAEMOLYTIC STREPTOCOCCAL INFECTION [None]
  - BLOOD CULTURE POSITIVE [None]
  - CELLULITIS [None]
  - LYMPHATIC OBSTRUCTION [None]
  - OEDEMA [None]
